FAERS Safety Report 24632458 (Version 1)
Quarter: 2024Q4

REPORT INFORMATION
  Report Type: Spontaneous
  Country: US (occurrence: US)
  Receive Date: 20241118
  Receipt Date: 20241118
  Transmission Date: 20250115
  Serious: No
  Sender: BRISTOL-MYERS SQUIBB COMPANY
  Company Number: US-BRISTOL-MYERS SQUIBB COMPANY-2024-178232

PATIENT
  Age: 4 Decade
  Sex: Female

DRUGS (2)
  1. REPOTRECTINIB [Suspect]
     Active Substance: REPOTRECTINIB
     Indication: Non-small cell lung cancer
  2. REPOTRECTINIB [Suspect]
     Active Substance: REPOTRECTINIB

REACTIONS (1)
  - Dyspnoea [Unknown]
